FAERS Safety Report 8978832 (Version 2)
Quarter: 2013Q1

REPORT INFORMATION
  Report Type: Spontaneous
  Country: US (occurrence: US)
  Receive Date: 20121221
  Receipt Date: 20130103
  Transmission Date: 20140127
  Serious: No
  Sender: FDA-Public Use
  Company Number: US-BIOGENIDEC-2012BI061905

PATIENT
  Age: 31 None
  Sex: Female

DRUGS (3)
  1. AVONEX [Suspect]
     Indication: MULTIPLE SCLEROSIS
     Route: 030
     Dates: start: 20051021, end: 20060903
  2. AVONEX [Suspect]
     Indication: MULTIPLE SCLEROSIS
     Route: 030
     Dates: start: 20080301, end: 20100930
  3. AVONEX [Suspect]
     Indication: MULTIPLE SCLEROSIS
     Route: 030
     Dates: start: 20110527, end: 20110601

REACTIONS (6)
  - Pollakiuria [Recovered/Resolved]
  - Balance disorder [Unknown]
  - Fall [Recovered/Resolved]
  - Depression [Recovered/Resolved]
  - Muscle spasticity [Not Recovered/Not Resolved]
  - Influenza like illness [Recovered/Resolved]
